FAERS Safety Report 25081820 (Version 2)
Quarter: 2025Q1

REPORT INFORMATION
  Report Type: Spontaneous
  Country: GB (occurrence: GB)
  Receive Date: 20250317
  Receipt Date: 20250324
  Transmission Date: 20250408
  Serious: Yes (Other)
  Sender: NOVO NORDISK
  Company Number: None

PATIENT
  Age: 37 Year
  Sex: Male
  Weight: 85 kg

DRUGS (3)
  1. NOVORAPID [Suspect]
     Active Substance: INSULIN ASPART
     Indication: Type 1 diabetes mellitus
     Route: 058
     Dates: start: 20220222
  2. TRESIBA [Suspect]
     Active Substance: INSULIN DEGLUDEC
     Indication: Type 1 diabetes mellitus
     Route: 058
     Dates: start: 20220222
  3. TRESIBA [Suspect]
     Active Substance: INSULIN DEGLUDEC
     Route: 058
     Dates: start: 20220222

REACTIONS (5)
  - Hyperglycaemia [Recovered/Resolved]
  - Malaise [Recovered/Resolved]
  - Overdose [Recovered/Resolved]
  - Wrong product administered [Recovered/Resolved]
  - Product outer packaging issue [Recovered/Resolved]

NARRATIVE: CASE EVENT DATE: 20250223
